FAERS Safety Report 8466422 (Version 7)
Quarter: 2013Q4

REPORT INFORMATION
  Report Type: Spontaneous
  Country: US (occurrence: US)
  Receive Date: 20120319
  Receipt Date: 20131115
  Transmission Date: 20140711
  Serious: Yes (Hospitalization)
  Sender: FDA-Public Use
  Company Number: US-B.I. PHARMACEUTICALS,INC./RIDGEFIELD-2012-BP-04854BP

PATIENT
  Age: 61 Year
  Sex: Male
  Weight: 172.36 kg

DRUGS (13)
  1. PRADAXA [Suspect]
     Indication: ATRIAL FIBRILLATION
     Dosage: 300 MG
     Route: 048
     Dates: start: 20110404, end: 20111214
  2. DIOVAN [Concomitant]
     Dosage: 320 MG
     Dates: start: 2010
  3. SPIRONOLACTONE [Concomitant]
     Dates: start: 2010
  4. JANTOVEN [Concomitant]
     Dates: start: 2010
  5. DILTIAZEM [Concomitant]
     Dates: start: 2010
  6. TEKTURNA [Concomitant]
     Dosage: 300 MG
  7. AMIODARONE [Concomitant]
     Indication: ATRIAL FIBRILLATION
     Dosage: 200 MG
  8. COREG [Concomitant]
     Dosage: 50 MG
     Dates: start: 2010
  9. LASIX [Concomitant]
     Dosage: 400 MG
  10. NEXIUM [Concomitant]
     Dosage: 40 MG
  11. POTASSIUM CHLORIDE [Concomitant]
     Dosage: 10 MEQ
  12. FLONASE [Concomitant]
     Dosage: 40 RT
  13. PLAVIX [Concomitant]

REACTIONS (5)
  - Gastrointestinal haemorrhage [Recovered/Resolved]
  - Haemorrhagic anaemia [Recovered/Resolved]
  - Coagulopathy [Unknown]
  - Pain [Unknown]
  - Emotional distress [Unknown]
